FAERS Safety Report 9271367 (Version 3)
Quarter: 2013Q2

REPORT INFORMATION
  Report Type: Spontaneous
  Country: US (occurrence: US)
  Receive Date: 20130506
  Receipt Date: 20130625
  Transmission Date: 20140414
  Serious: No
  Sender: FDA-Public Use
  Company Number: US-PFIZER INC-2013140146

PATIENT
  Age: 64 Year
  Sex: Female
  Weight: 50.79 kg

DRUGS (6)
  1. LYRICA [Suspect]
     Indication: NEURALGIA
     Dosage: 50 MG, 3X/DAY
     Route: 048
  2. CLONAZEPAM [Concomitant]
     Dosage: 1 MG, 2X/DAY
  3. AMITRIPTYLINE [Concomitant]
     Dosage: 0.25 MG, AS NEEDED
  4. PRAVASTATIN [Concomitant]
     Dosage: 40 MG, 2X/DAY
  5. HYDROMORPHONE [Concomitant]
     Dosage: 4 MG, 4X/DAY
  6. SAVELLA [Concomitant]
     Indication: PAIN
     Dosage: 50 MG, 2X/DAY

REACTIONS (4)
  - Back pain [Unknown]
  - Pain [Unknown]
  - Joint swelling [Unknown]
  - Local swelling [Unknown]
